FAERS Safety Report 24862073 (Version 1)
Quarter: 2025Q1

REPORT INFORMATION
  Report Type: Spontaneous
  Country: CN (occurrence: CN)
  Receive Date: 20250120
  Receipt Date: 20250120
  Transmission Date: 20250409
  Serious: Yes (Other)
  Sender: NOVARTIS
  Company Number: CN-002147023-NVSC2025CN007504

PATIENT
  Age: 63 Year
  Sex: Male

DRUGS (5)
  1. ZOMETA [Suspect]
     Active Substance: ZOLEDRONIC ACID
     Indication: Triple negative breast cancer
     Route: 065
     Dates: start: 20211014, end: 20220420
  2. PACLITAXEL [Concomitant]
     Active Substance: PACLITAXEL
     Indication: Triple negative breast cancer
     Route: 065
     Dates: start: 20211014, end: 20220420
  3. PACLITAXEL [Concomitant]
     Active Substance: PACLITAXEL
     Indication: Adenocarcinoma
  4. EPIRUBICIN [Concomitant]
     Active Substance: EPIRUBICIN
     Indication: Triple negative breast cancer
     Route: 065
     Dates: start: 20211014, end: 20220420
  5. EPIRUBICIN [Concomitant]
     Active Substance: EPIRUBICIN
     Indication: Adenocarcinoma

REACTIONS (4)
  - Neurotoxicity [Unknown]
  - Therapy partial responder [Unknown]
  - Paraesthesia [Unknown]
  - Hypoaesthesia [Unknown]
